FAERS Safety Report 8794582 (Version 2)
Quarter: 2013Q3

REPORT INFORMATION
  Report Type: Report from Study
  Country: US (occurrence: US)
  Receive Date: 20120917
  Receipt Date: 20130708
  Transmission Date: 20140515
  Serious: Yes (Other)
  Sender: FDA-Public Use
  Company Number: US-VERTEX PHARMACEUTICAL INC.-AE-2012-010670

PATIENT
  Age: 65 Year
  Sex: Male

DRUGS (4)
  1. VX-950 (TELAPREVIR) [Suspect]
     Indication: HEPATITIS C
     Dosage: UNK
     Route: 048
     Dates: start: 20120607, end: 20120830
  2. RIBAVIRIN [Suspect]
     Indication: HEPATITIS C
     Dosage: UNK
     Dates: start: 20120607
  3. RIBAVIRIN [Suspect]
     Dosage: 200 MG, QD
     Dates: start: 201207, end: 20121122
  4. PEGASYS [Suspect]
     Indication: HEPATITIS C
     Dosage: UNK
     Dates: start: 20120607, end: 20121122

REACTIONS (10)
  - Anaemia [Not Recovered/Not Resolved]
  - Amnesia [Recovered/Resolved]
  - White blood cell count decreased [Not Recovered/Not Resolved]
  - Nasopharyngitis [Recovered/Resolved]
  - Immune system disorder [Recovered/Resolved]
  - Feeling abnormal [Not Recovered/Not Resolved]
  - Decreased appetite [Unknown]
  - Fatigue [Recovered/Resolved]
  - Vomiting [Not Recovered/Not Resolved]
  - Nausea [Recovered/Resolved]
